FAERS Safety Report 5363105-7 (Version None)
Quarter: 2007Q2

REPORT INFORMATION
  Report Type: 
  Country: None (occurrence: None)
  Receive Date: 20070615
  Receipt Date: 20070604
  Transmission Date: 20071010
  Serious: Yes (Hospitalization)
  Sender: FDA-Public Use
  Company Number: 2007-01601

PATIENT
  Age: 57 Year
  Sex: Female

DRUGS (1)
  1. VELCADE [Suspect]
     Indication: PLASMACYTOMA

REACTIONS (2)
  - ALVEOLITIS NECROTISING [None]
  - SMALL CELL LUNG CANCER STAGE UNSPECIFIED [None]
